FAERS Safety Report 6683825-1 (Version None)
Quarter: 2010Q2

REPORT INFORMATION
  Report Type: 
  Country: None (occurrence: None)
  Receive Date: 20100416
  Receipt Date: 20090225
  Transmission Date: 20101027
  Serious: No
  Sender: FDA-Public Use
  Company Number: A0826967A

PATIENT
  Sex: Female

DRUGS (1)
  1. VUSION [Suspect]
     Indication: DECUBITUS ULCER
     Route: 061

REACTIONS (1)
  - HAIR GROWTH ABNORMAL [None]
